FAERS Safety Report 15271402 (Version 1)
Quarter: 2018Q3

REPORT INFORMATION
  Report Type: Spontaneous
  Country: IN (occurrence: IN)
  Receive Date: 20180813
  Receipt Date: 20180813
  Transmission Date: 20181010
  Serious: Yes (Death, Life-Threatening, Hospitalization, Other)
  Sender: FDA-Public Use
  Company Number: IN-JNJFOC-20180811980

PATIENT
  Age: 21 Year
  Sex: Male

DRUGS (11)
  1. VITAMIN K [Concomitant]
     Active Substance: PHYTONADIONE
     Indication: POISONING DELIBERATE
     Route: 030
  2. PHENERGAN [Concomitant]
     Active Substance: PROMETHAZINE HYDROCHLORIDE
     Indication: SCHIZOPHRENIA
     Route: 030
  3. NORMAL SALINE [Concomitant]
     Active Substance: SODIUM CHLORIDE
     Indication: POISONING DELIBERATE
     Route: 042
  4. SODIUM VALPROATE [Concomitant]
     Active Substance: VALPROATE SODIUM
     Indication: SCHIZOPHRENIA
     Route: 065
  5. FLUOXETINE [Suspect]
     Active Substance: FLUOXETINE HYDROCHLORIDE
     Indication: SCHIZOPHRENIA
     Route: 065
  6. HALOPERIDOL. [Suspect]
     Active Substance: HALOPERIDOL
     Indication: SCHIZOPHRENIA
     Route: 065
  7. IMIPRAMINE [Interacting]
     Active Substance: IMIPRAMINE
     Indication: SCHIZOPHRENIA
     Route: 065
  8. DNS [Concomitant]
     Indication: POISONING DELIBERATE
     Route: 042
  9. RANITIDINE. [Concomitant]
     Active Substance: RANITIDINE
     Indication: POISONING DELIBERATE
     Route: 042
  10. RINGERS LACTATE [Concomitant]
     Active Substance: CALCIUM CHLORIDE\POTASSIUM CHLORIDE\SODIUM LACTATE
     Indication: POISONING DELIBERATE
     Route: 042
  11. CEFOTAXIME [Concomitant]
     Active Substance: CEFOTAXIME SODIUM
     Indication: POISONING DELIBERATE
     Route: 065

REACTIONS (3)
  - Electrocardiogram QT prolonged [Not Recovered/Not Resolved]
  - Cardio-respiratory arrest [Fatal]
  - Drug interaction [Not Recovered/Not Resolved]
